FAERS Safety Report 7957202-7 (Version None)
Quarter: 2011Q4

REPORT INFORMATION
  Report Type: 
  Country: None (occurrence: None)
  Receive Date: 20111205
  Receipt Date: 20111129
  Transmission Date: 20120403
  Serious: Yes (Death, Hospitalization)
  Sender: FDA-Public Use
  Company Number: PL-JNJFOC-20111200838

PATIENT
  Age: 49 Year
  Sex: Male

DRUGS (1)
  1. CLADRIBINE [Suspect]
     Indication: HAIRY CELL LEUKAEMIA
     Route: 041

REACTIONS (2)
  - BONE MARROW FAILURE [None]
  - ASPERGILLOSIS [None]
